FAERS Safety Report 9685233 (Version 2)
Quarter: 2013Q4

REPORT INFORMATION
  Report Type: Spontaneous
  Country: TR (occurrence: TR)
  Receive Date: 20131113
  Receipt Date: 20131125
  Transmission Date: 20140711
  Serious: Yes (Other)
  Sender: FDA-Public Use
  Company Number: TR-BAYER-2013-137529

PATIENT
  Age: 42 Year
  Sex: Female

DRUGS (1)
  1. ETHINYLESTRADIOL + GESTODENE [Suspect]
     Dosage: UNK
     Dates: start: 2010, end: 2012

REACTIONS (1)
  - Mastitis [None]
